FAERS Safety Report 15633015 (Version 2)
Quarter: 2018Q4

REPORT INFORMATION
  Report Type: Spontaneous
  Country: US (occurrence: US)
  Receive Date: 20181119
  Receipt Date: 20181228
  Transmission Date: 20190205
  Serious: Yes (Other)
  Sender: FDA-Public Use
  Company Number: US-INCYTE CORPORATION-2018IN011592

PATIENT

DRUGS (1)
  1. JAKAFI [Suspect]
     Active Substance: RUXOLITINIB
     Indication: DIFFUSE LARGE B-CELL LYMPHOMA
     Dosage: 10 MG, BID
     Route: 048
     Dates: start: 20181011

REACTIONS (7)
  - Mental impairment [Unknown]
  - Amnesia [Unknown]
  - Weight increased [Unknown]
  - Fatigue [Unknown]
  - Confusional state [Unknown]
  - Depression [Unknown]
  - Off label use [Unknown]

NARRATIVE: CASE EVENT DATE: 20181201
